FAERS Safety Report 9429925 (Version 1)
Quarter: 2013Q3

REPORT INFORMATION
  Report Type: Spontaneous
  Country: IN (occurrence: None)
  Receive Date: 20130726
  Receipt Date: 20130726
  Transmission Date: 20140515
  Serious: Yes (Other)
  Sender: FDA-Public Use
  Company Number: AUR-APL-2013-06091

PATIENT
  Age: 45 Year
  Sex: Male

DRUGS (1)
  1. VALPROATE SEMISODIUM [Suspect]
     Indication: TEMPORAL LOBE EPILEPSY

REACTIONS (3)
  - Irritability [None]
  - Abnormal behaviour [None]
  - Substance-induced psychotic disorder [None]
